FAERS Safety Report 8114763-5 (Version None)
Quarter: 2012Q1

REPORT INFORMATION
  Report Type: 
  Country: None (occurrence: None)
  Receive Date: 20120206
  Receipt Date: 20120201
  Transmission Date: 20120608
  Serious: Yes (Life-Threatening, Other)
  Sender: FDA-Public Use
  Company Number: FR-PFIZER INC-2011134922

PATIENT
  Age: 47 Year
  Sex: Male

DRUGS (1)
  1. SOLU-MEDROL [Suspect]
     Indication: MULTIPLE SCLEROSIS RELAPSE
     Dosage: 1 GBQ, SINGLE
     Route: 042
     Dates: start: 20110513, end: 20110513

REACTIONS (2)
  - HYPERSENSITIVITY [None]
  - SHOCK [None]
